FAERS Safety Report 7954704-4 (Version None)
Quarter: 2011Q4

REPORT INFORMATION
  Report Type: 
  Country: None (occurrence: None)
  Receive Date: 20111202
  Receipt Date: 20111123
  Transmission Date: 20120403
  Serious: Yes (Other)
  Sender: FDA-Public Use
  Company Number: US-ABBOTT-11P-163-0878230-00

PATIENT
  Sex: Female
  Weight: 65.83 kg

DRUGS (10)
  1. SULFASALAZINE [Concomitant]
     Indication: RHEUMATOID ARTHRITIS
     Dates: start: 20100124, end: 20100605
  2. PLAQUENIL [Concomitant]
     Indication: RHEUMATOID ARTHRITIS
     Route: 048
     Dates: start: 20100124, end: 20101025
  3. PREDNISONE TAB [Concomitant]
     Indication: RHEUMATOID ARTHRITIS
     Route: 048
     Dates: start: 20100219, end: 20100531
  4. FLINTSTONES MULTIPLE VITAMINS [Concomitant]
     Indication: VITAMIN SUPPLEMENTATION
     Route: 048
     Dates: start: 20100124, end: 20100410
  5. HUMIRA [Suspect]
     Indication: RHEUMATOID ARTHRITIS
     Route: 058
     Dates: start: 20100124, end: 20100605
  6. PREDNISONE TAB [Concomitant]
     Dates: start: 20101015, end: 20101025
  7. MULTI-VITAMINS [Concomitant]
     Indication: PREGNANCY
     Route: 048
     Dates: start: 20100124, end: 20101025
  8. PREDNISONE TAB [Concomitant]
     Route: 048
     Dates: start: 20100601, end: 20100614
  9. PREDNISONE TAB [Concomitant]
     Route: 048
     Dates: start: 20100614, end: 20100709
  10. ANESTHETICS, LOCAL [Concomitant]
     Indication: CERVIX CERCLAGE PROCEDURE
     Dosage: SPINAL, LOCAL
     Dates: start: 20100427, end: 20100427

REACTIONS (5)
  - DYSPEPSIA [None]
  - HEADACHE [None]
  - RESPIRATORY TRACT INFECTION VIRAL [None]
  - CERVIX CERCLAGE PROCEDURE [None]
  - GASTROOESOPHAGEAL REFLUX DISEASE [None]
